FAERS Safety Report 10657246 (Version 1)
Quarter: 2014Q4

REPORT INFORMATION
  Report Type: Spontaneous
  Country: FR (occurrence: None)
  Receive Date: 20141215
  Receipt Date: 20141215
  Transmission Date: 20150529
  Serious: Yes (Hospitalization)
  Sender: FDA-Public Use
  Company Number: FR-2014TEC0000028

PATIENT
  Age: 60 Year
  Sex: Male

DRUGS (3)
  1. HEPARIN SODIUM. [Suspect]
     Active Substance: HEPARIN SODIUM
     Indication: MOBILITY DECREASED
     Dosage: 2500 UNITS, BID
     Route: 058
  2. HEPARIN SODIUM. [Suspect]
     Active Substance: HEPARIN SODIUM
     Indication: INFLAMMATION
     Dosage: 2500 UNITS, BID
     Route: 058
  3. HEPARIN SODIUM. [Suspect]
     Active Substance: HEPARIN SODIUM
     Indication: CENTRAL VENOUS CATHETERISATION
     Dosage: 2500 UNITS, BID
     Route: 058

REACTIONS (3)
  - Anaemia [None]
  - Rectal ulcer [None]
  - Lower gastrointestinal haemorrhage [None]
